FAERS Safety Report 21114176 (Version 1)
Quarter: 2022Q3

REPORT INFORMATION
  Report Type: Spontaneous
  Country: US (occurrence: None)
  Receive Date: 20220721
  Receipt Date: 20220721
  Transmission Date: 20221027
  Serious: No
  Sender: FDA-Public Use
  Company Number: None

PATIENT

DRUGS (2)
  1. BUPIVACAINE HYDROCHLORIDE [Suspect]
     Active Substance: BUPIVACAINE HYDROCHLORIDE
     Dosage: OTHER FREQUENCY : SINGLE DOSE VIAL;?OTHER ROUTE : INJECTION;?
     Route: 050
  2. LIDOCAINE HYDROCHLORIDE [Suspect]
     Active Substance: LIDOCAINE HYDROCHLORIDE
     Dosage: OTHER FREQUENCY : SINGLE DOSE VIAL;?OTHER ROUTE : INJECTION;?
     Route: 050

REACTIONS (2)
  - Product name confusion [None]
  - Product packaging confusion [None]
